FAERS Safety Report 6368397-3 (Version None)
Quarter: 2009Q3

REPORT INFORMATION
  Report Type: 
  Country: None (occurrence: None)
  Receive Date: 20090914
  Receipt Date: 20090206
  Transmission Date: 20100115
  Serious: Yes (Other)
  Sender: FDA-Public Use
  Company Number: 2009VX001503

PATIENT
  Sex: Male

DRUGS (2)
  1. DIHYDROERGOTAMINE MESYLATE (DIHYDROERGOTAMINE MESYLATE) [Suspect]
     Indication: HEART RATE DECREASED
  2. DIHYDROERGOTAMINE MESYLATE (DIHYDROERGOTAMINE MESYLATE) [Suspect]
     Indication: HYPOTENSION

REACTIONS (9)
  - ABDOMINAL PAIN UPPER [None]
  - CHEST PAIN [None]
  - DISTURBANCE IN ATTENTION [None]
  - LIBIDO DECREASED [None]
  - OESOPHAGEAL OBSTRUCTION [None]
  - OLFACTORY TEST ABNORMAL [None]
  - SPEECH DISORDER [None]
  - VERTIGO [None]
  - WEIGHT DECREASED [None]
